FAERS Safety Report 13349389 (Version 1)
Quarter: 2017Q1

REPORT INFORMATION
  Report Type: Spontaneous
  Country: US (occurrence: US)
  Receive Date: 20170317
  Receipt Date: 20170317
  Transmission Date: 20170428
  Serious: Yes (Hospitalization)
  Sender: FDA-Public Use
  Company Number: None

PATIENT
  Age: 62 Year
  Sex: Male
  Weight: 69.3 kg

DRUGS (13)
  1. FUROSEMIDE. [Concomitant]
     Active Substance: FUROSEMIDE
  2. THIAMINE. [Concomitant]
     Active Substance: THIAMINE
  3. ELBASVIR/GRAZOPREVIR [Suspect]
     Active Substance: ELBASVIR\GRAZOPREVIR
     Indication: HEPATITIS C VIRUS TEST
     Route: 048
  4. FOLIC ACID. [Concomitant]
     Active Substance: FOLIC ACID
  5. LACTULOSE. [Concomitant]
     Active Substance: LACTULOSE
  6. PANTOPRAZOLE [Concomitant]
     Active Substance: PANTOPRAZOLE SODIUM
  7. SPIRONOLACTONE. [Concomitant]
     Active Substance: SPIRONOLACTONE
  8. OXYMETAZOLINE [Concomitant]
     Active Substance: OXYMETAZOLINE
  9. ZEPATIER [Concomitant]
     Active Substance: ELBASVIR\GRAZOPREVIR
  10. CIPROFLOXACIN. [Concomitant]
     Active Substance: CIPROFLOXACIN
  11. ERGOCALCIFEROL. [Concomitant]
     Active Substance: ERGOCALCIFEROL
  12. MIDODRINE [Concomitant]
     Active Substance: MIDODRINE
  13. SODIUM CHLORIDE. [Concomitant]
     Active Substance: SODIUM CHLORIDE

REACTIONS (8)
  - Renal failure [None]
  - Rash morbilliform [None]
  - Eosinophilia [None]
  - Epistaxis [None]
  - Hypersensitivity vasculitis [None]
  - Disseminated intravascular coagulation [None]
  - Drug eruption [None]
  - Dialysis [None]

NARRATIVE: CASE EVENT DATE: 20161008
